FAERS Safety Report 4463910-5 (Version None)
Quarter: 2004Q3

REPORT INFORMATION
  Report Type: 
  Country: None (occurrence: None)
  Receive Date: 20040929
  Receipt Date: 20040920
  Transmission Date: 20050211
  Serious: Yes (Hospitalization)
  Sender: FDA-Public Use
  Company Number: SE-JNJFOC-20040906657

PATIENT
  Age: 26 Year
  Sex: Male

DRUGS (1)
  1. IBUPROFEN [Suspect]
     Indication: MALAISE
     Dosage: ORAL
     Route: 048

REACTIONS (14)
  - ABASIA [None]
  - DYSSTASIA [None]
  - EYE IRRITATION [None]
  - KERATITIS [None]
  - MUCOSAL EROSION [None]
  - OCULOMUCOCUTANEOUS SYNDROME [None]
  - ORAL DISCOMFORT [None]
  - ORAL MUCOSAL BLISTERING [None]
  - PHARYNGEAL ERYTHEMA [None]
  - PHARYNGOLARYNGEAL PAIN [None]
  - PYREXIA [None]
  - RASH MACULO-PAPULAR [None]
  - SPEECH DISORDER [None]
  - TONGUE DISORDER [None]
